FAERS Safety Report 6945511-X (Version None)
Quarter: 2010Q3

REPORT INFORMATION
  Report Type: 
  Country: None (occurrence: None)
  Receive Date: 20100827
  Receipt Date: 20100818
  Transmission Date: 20110219
  Serious: Yes (Hospitalization, Other)
  Sender: FDA-Public Use
  Company Number: US-ABBOTT-10P-163-0665193-00

PATIENT
  Sex: Male
  Weight: 72.64 kg

DRUGS (8)
  1. NIASPAN [Suspect]
     Indication: BLOOD CHOLESTEROL INCREASED
     Dosage: AT BEDTIME
     Dates: start: 20070101
  2. CRESTOR [Concomitant]
     Indication: PRODUCT USED FOR UNKNOWN INDICATION
  3. KLOR-CON [Concomitant]
     Indication: PROPHYLAXIS
  4. RAMIPRIL [Concomitant]
     Indication: MYOCARDIAL INFARCTION
  5. FUROSEMIDE [Concomitant]
     Indication: FLUID RETENTION
  6. PLAVIX [Concomitant]
     Indication: MYOCARDIAL INFARCTION
     Dates: start: 20040101
  7. CARVEDILOL [Concomitant]
     Indication: MYOCARDIAL INFARCTION
  8. ASPIRIN [Concomitant]
     Indication: MYOCARDIAL INFARCTION

REACTIONS (3)
  - FLUSHING [None]
  - MYOCARDIAL INFARCTION [None]
  - PRURITUS [None]
